FAERS Safety Report 6000286-6 (Version None)
Quarter: 2008Q4

REPORT INFORMATION
  Report Type: 
  Country: None (occurrence: None)
  Receive Date: 20081215
  Receipt Date: 20081209
  Transmission Date: 20090506
  Serious: Yes (Other)
  Sender: FDA-Public Use
  Company Number: US-ELI_LILLY_AND_COMPANY-US200812002633

PATIENT
  Sex: Female

DRUGS (1)
  1. HUMULIN 70/30 [Suspect]
     Dates: start: 19880101

REACTIONS (5)
  - BLOOD GLUCOSE DECREASED [None]
  - CATARACT [None]
  - COMA [None]
  - FEELING ABNORMAL [None]
  - UNRESPONSIVE TO STIMULI [None]
